FAERS Safety Report 25336245 (Version 2)
Quarter: 2025Q3

REPORT INFORMATION
  Report Type: Spontaneous
  Country: EU (occurrence: EU)
  Receive Date: 20250520
  Receipt Date: 20250714
  Transmission Date: 20251021
  Serious: Yes (Death, Hospitalization, Other)
  Sender: PFIZER
  Company Number: EU-PFIZER INC-202500102896

PATIENT
  Sex: Male

DRUGS (1)
  1. ELREXFIO [Suspect]
     Active Substance: ELRANATAMAB-BCMM
     Indication: Plasma cell myeloma

REACTIONS (5)
  - Shock [Fatal]
  - Femoral neck fracture [Unknown]
  - Immune effector cell-associated neurotoxicity syndrome [Unknown]
  - Fall [Unknown]
  - Cognitive disorder [Recovering/Resolving]
